FAERS Safety Report 20789570 (Version 1)
Quarter: 2022Q2

REPORT INFORMATION
  Report Type: Spontaneous
  Country: US (occurrence: US)
  Receive Date: 20220505
  Receipt Date: 20220505
  Transmission Date: 20220720
  Serious: Yes (Other)
  Sender: FDA-Public Use
  Company Number: None

PATIENT
  Age: 59 Year
  Sex: Male

DRUGS (4)
  1. DEXAMETHASONE [Suspect]
     Active Substance: DEXAMETHASONE
     Indication: Back pain
     Dosage: 10 MILLIGRAM, ON THE RIGHT SIDE AND LEFT SIDE OF HIS BACK
     Route: 008
  2. DEXAMETHASONE [Suspect]
     Active Substance: DEXAMETHASONE
     Dosage: 10 MILLIGRAM, ANOTHER SET OF EPIDURAL INJECTIONS WAS GIVEN 10 MG DEXAMETHASONE
     Route: 008
  3. BUPIVACAINE [Concomitant]
     Active Substance: BUPIVACAINE
     Indication: Back pain
     Dosage: 1 MILLILITER, ON THE RIGHT SIDE AND LEFT SIDE OF HIS BACK
     Route: 008
  4. BUPIVACAINE [Concomitant]
     Active Substance: BUPIVACAINE
     Dosage: 1 MILLILITER, ONCE AGAIN ON BOTH THE RIGHT AND LEFT SIDE
     Route: 008

REACTIONS (7)
  - Hiccups [Recovered/Resolved]
  - Abdominal pain [Recovered/Resolved]
  - Flatulence [Recovered/Resolved]
  - Dysphagia [Recovered/Resolved]
  - Eating disorder symptom [Recovered/Resolved]
  - Sleep disorder [Recovered/Resolved]
  - Off label use [Unknown]
